FAERS Safety Report 6811958-5 (Version None)
Quarter: 2010Q3

REPORT INFORMATION
  Report Type: 
  Country: None (occurrence: None)
  Receive Date: 20100701
  Receipt Date: 20100629
  Transmission Date: 20110219
  Serious: Yes (Other)
  Sender: FDA-Public Use
  Company Number: AT-EISAI INC.-E2090-01216-SPO-AT

PATIENT
  Age: 89 Year
  Sex: Female

DRUGS (3)
  1. ZONEGRAN [Suspect]
     Route: 048
     Dates: start: 20100607, end: 20100610
  2. ZONEGRAN [Suspect]
     Route: 048
     Dates: start: 20100611, end: 20100621
  3. VALPROIC ACID [Concomitant]

REACTIONS (1)
  - PANCYTOPENIA [None]
